FAERS Safety Report 13929156 (Version 3)
Quarter: 2018Q3

REPORT INFORMATION
  Report Type: Spontaneous
  Country: DE (occurrence: DE)
  Receive Date: 20170901
  Receipt Date: 20180725
  Transmission Date: 20181010
  Serious: Yes (Life-Threatening, Hospitalization, Other)
  Sender: FDA-Public Use
  Company Number: DE-MACLEODS PHARMACEUTICALS US LTD-MAC2017005792

PATIENT

DRUGS (4)
  1. AMITRIPTYLLINE TABLETS [Suspect]
     Active Substance: AMITRIPTYLINE
     Indication: DEPRESSION
  2. QUETIAPINE TABLET [Suspect]
     Active Substance: QUETIAPINE
     Indication: BORDERLINE PERSONALITY DISORDER
     Dosage: 10 GRAM (POTENTIALLY LETHAL DOSE, 150 MG/KG BODYWEIGHT ))
     Route: 048
  3. AMITRIPTYLLINE TABLETS [Suspect]
     Active Substance: AMITRIPTYLINE
     Indication: BORDERLINE PERSONALITY DISORDER
     Dosage: 5.5 GRAM (POTENTIALLY LETHAL DOSE, 85 MG/KG BODYWEIGHT )
     Route: 048
  4. QUETIAPINE TABLET [Suspect]
     Active Substance: QUETIAPINE
     Indication: DEPRESSION
     Dosage: UNK
     Route: 048

REACTIONS (10)
  - Toxicity to various agents [Recovering/Resolving]
  - Hyperthermia [Recovered/Resolved]
  - Myoclonus [Recovered/Resolved]
  - Electrocardiogram QT prolonged [Recovering/Resolving]
  - Ventricular tachycardia [Recovered/Resolved]
  - Coma [Recovered/Resolved]
  - Arrhythmia [Recovered/Resolved]
  - Anticholinergic syndrome [Recovered/Resolved]
  - Alcohol poisoning [Recovering/Resolving]
  - Shock [Recovered/Resolved]
